FAERS Safety Report 7626333-3 (Version None)
Quarter: 2011Q3

REPORT INFORMATION
  Report Type: 
  Country: None (occurrence: None)
  Receive Date: 20110721
  Receipt Date: 20110715
  Transmission Date: 20111222
  Serious: Yes (Other)
  Sender: FDA-Public Use
  Company Number: PHHY2011US05687

PATIENT
  Sex: Female

DRUGS (12)
  1. VITAMIN B-12 [Concomitant]
  2. VITAMIN D [Concomitant]
  3. MULTI-VITAMINS [Concomitant]
  4. RECLAST [Suspect]
     Dosage: 5 MG/100ML, ONCE YEARLY
     Route: 042
     Dates: start: 20100721
  5. OMEPRAZOLE [Concomitant]
     Indication: GASTROOESOPHAGEAL REFLUX DISEASE
  6. LOVAZA [Concomitant]
  7. CHONDROITIN [Concomitant]
  8. GARLIC [Concomitant]
  9. CALCIUM CARBONATE [Concomitant]
  10. ASPIRIN [Concomitant]
     Dosage: 81 MG, UNK
  11. RECLAST [Suspect]
     Dosage: 5 MG/100ML, ONCE YEARLY
     Route: 042
     Dates: start: 20090730
  12. GLUCOSAMINE [Concomitant]

REACTIONS (6)
  - TOOTH ABSCESS [None]
  - OSTEOMYELITIS [None]
  - TOOTH DISCOLOURATION [None]
  - ORAL INFECTION [None]
  - DENTAL CARIES [None]
  - TOOTH DISORDER [None]
